FAERS Safety Report 9423568 (Version 1)
Quarter: 2013Q3

REPORT INFORMATION
  Report Type: Spontaneous
  Country: AU (occurrence: AU)
  Receive Date: 20130726
  Receipt Date: 20130726
  Transmission Date: 20140515
  Serious: Yes (Hospitalization)
  Sender: FDA-Public Use
  Company Number: AU-GLAXOSMITHKLINE-B0909625A

PATIENT
  Age: 74 Year
  Sex: Male

DRUGS (3)
  1. PAZOPANIB [Suspect]
     Indication: PRODUCT USED FOR UNKNOWN INDICATION
     Dosage: 400MG PER DAY
     Route: 065
     Dates: start: 20120731
  2. CLEXANE [Concomitant]
     Route: 065
  3. WARFARIN [Concomitant]
     Route: 065

REACTIONS (4)
  - Anaemia [Unknown]
  - Infection [Unknown]
  - Physical disability [Unknown]
  - Neuropathy peripheral [Unknown]
